FAERS Safety Report 24826854 (Version 1)
Quarter: 2025Q1

REPORT INFORMATION
  Report Type: Spontaneous
  Country: US (occurrence: US)
  Receive Date: 20250109
  Receipt Date: 20250109
  Transmission Date: 20250408
  Serious: Yes (Other)
  Sender: ORGANON
  Company Number: US-Organon-US20240600998

PATIENT
  Sex: Female

DRUGS (10)
  1. FOLLISTIM AQ [Suspect]
     Active Substance: FOLLITROPIN
     Indication: Infertility
     Dosage: (900 IU/1.08ML, 2=1) 300 IU INTERNATIONAL UNIT(S), DAILY BETWEEN 6 TO 8 PM AS DIRECTED
     Route: 058
     Dates: start: 20240620
  2. PREGNYL [Suspect]
     Active Substance: CHORIOGONADOTROPIN ALFA
     Indication: Infertility
     Route: 030
     Dates: start: 20240620
  3. WATER FOR INJECTION [Suspect]
     Active Substance: WATER
     Route: 030
  4. PROGESTERONE [Concomitant]
     Active Substance: PROGESTERONE
  5. GANIRELIX ACETATE [Concomitant]
     Active Substance: GANIRELIX ACETATE
  6. CHORIONIC GONADOTROPIN [Concomitant]
     Active Substance: CHORIOGONADOTROPIN ALFA
  7. LEUPROLIDE ACETATE [Concomitant]
     Active Substance: LEUPROLIDE ACETATE
  8. LEUPROLIDE ACETATE [Concomitant]
     Active Substance: LEUPROLIDE ACETATE
  9. MELOXICAM [Concomitant]
     Active Substance: MELOXICAM
  10. LETROZOLE [Concomitant]
     Active Substance: LETROZOLE

REACTIONS (4)
  - Pneumonia [Unknown]
  - Emotional disorder [Not Recovered/Not Resolved]
  - Injection site irritation [Unknown]
  - Chest pain [Unknown]

NARRATIVE: CASE EVENT DATE: 20240101
